FAERS Safety Report 9116274 (Version 1)
Quarter: 2013Q1

REPORT INFORMATION
  Report Type: Spontaneous
  Country: IT (occurrence: US)
  Receive Date: 20130225
  Receipt Date: 20130225
  Transmission Date: 20140127
  Serious: Yes (Other)
  Sender: FDA-Public Use
  Company Number: US-TEVA-387468USA

PATIENT
  Age: 38 Year
  Sex: Female

DRUGS (2)
  1. RIBAVIRIN [Suspect]
     Indication: CHRONIC HEPATITIS C
     Route: 065
  2. INTERFERON ALFA-2A [Suspect]
     Indication: CHRONIC HEPATITIS C
     Route: 065

REACTIONS (4)
  - Pyramidal tract syndrome [Recovered/Resolved with Sequelae]
  - Abasia [None]
  - Musculoskeletal disorder [None]
  - Paresis [None]
